FAERS Safety Report 21837018 (Version 2)
Quarter: 2023Q1

REPORT INFORMATION
  Report Type: Spontaneous
  Country: US (occurrence: US)
  Receive Date: 20230109
  Receipt Date: 20230111
  Transmission Date: 20230418
  Serious: No
  Sender: FDA-Public Use
  Company Number: US-002147023-NVSC2023US003439

PATIENT
  Sex: Female

DRUGS (1)
  1. TRAVOPROST [Suspect]
     Active Substance: TRAVOPROST
     Indication: Product used for unknown indication
     Dosage: UNK (40MCG/ML 2.5ML)
     Route: 065

REACTIONS (3)
  - Eye pain [Recovering/Resolving]
  - Eye irritation [Recovering/Resolving]
  - Eye discharge [Recovering/Resolving]
